FAERS Safety Report 8801823 (Version 4)
Quarter: 2013Q1

REPORT INFORMATION
  Report Type: Report from Study
  Country: NL (occurrence: NL)
  Receive Date: 20120921
  Receipt Date: 20130214
  Transmission Date: 20140127
  Serious: Yes (Life-Threatening, Hospitalization, Other)
  Sender: FDA-Public Use
  Company Number: NL-ABBOTT-12P-114-0981797-00

PATIENT
  Age: 71 Year
  Sex: Male
  Weight: 133 kg

DRUGS (16)
  1. HUMIRA [Suspect]
     Indication: PSORIASIS
     Route: 058
     Dates: start: 20081001, end: 20120220
  2. LIPITOR [Concomitant]
     Indication: HYPERCHOLESTEROLAEMIA
  3. APROVEL [Concomitant]
     Indication: HYPERTENSION
  4. HUMULINE [Concomitant]
     Indication: TYPE 2 DIABETES MELLITUS
     Dosage: 32/34 IE TWICE DAILY
     Dates: end: 201212
  5. ACTOS [Concomitant]
     Indication: DIABETES MELLITUS
     Dates: end: 20120812
  6. METFORMINE [Concomitant]
     Indication: TYPE 2 DIABETES MELLITUS
  7. FUROSEMIDE [Concomitant]
     Indication: HYPERTENSION
     Dates: end: 20120719
  8. HYDROCHLOORTHIAZIDE [Concomitant]
     Indication: HYPERTENSION
     Dates: end: 201204
  9. PARACETAMOL [Concomitant]
     Indication: ARTHRALGIA
     Dates: start: 20101111
  10. DOVOBET [Concomitant]
     Indication: PSORIASIS
     Dates: start: 20110217
  11. CARBASALAATCALCIUM [Concomitant]
     Indication: CARDIOVASCULAR EVENT PROPHYLAXIS
     Dates: start: 20120115
  12. NIFEDIPINE [Concomitant]
     Indication: HYPERTENSION
     Dates: start: 20120115
  13. SPIRIVA [Concomitant]
     Indication: DYSPNOEA
     Dates: start: 20120115, end: 201208
  14. DOXYCYCLINE [Concomitant]
     Indication: PNEUMONIA
     Dates: start: 20120808, end: 20120813
  15. NITROLINGUAL [Concomitant]
     Indication: PULMONARY HYPERTENSION
     Dates: start: 20111106
  16. FLUTICASONE [Concomitant]
     Indication: RHINITIS
     Dates: end: 201301

REACTIONS (1)
  - Atrioventricular block complete [Recovered/Resolved]
